FAERS Safety Report 19904288 (Version 1)
Quarter: 2021Q4

REPORT INFORMATION
  Report Type: Spontaneous
  Country: US (occurrence: US)
  Receive Date: 20211001
  Receipt Date: 20211001
  Transmission Date: 20220303
  Serious: No
  Sender: FDA-Public Use
  Company Number: US-PFIZER INC-202101004459

PATIENT
  Age: 21 Year
  Sex: Male
  Weight: 90.7 kg

DRUGS (1)
  1. BOSULIF [Suspect]
     Active Substance: BOSUTINIB MONOHYDRATE
     Indication: Neoplasm
     Dosage: 500 MG, DAILY
     Route: 048

REACTIONS (3)
  - Headache [Unknown]
  - Nausea [Unknown]
  - Rash [Unknown]
